FAERS Safety Report 15214606 (Version 1)
Quarter: 2018Q3

REPORT INFORMATION
  Report Type: Spontaneous
  Country: FR (occurrence: FR)
  Receive Date: 20180730
  Receipt Date: 20180730
  Transmission Date: 20181010
  Serious: No
  Sender: FDA-Public Use
  Company Number: FR-B. BRAUN MEDICAL INC.-2052916

PATIENT
  Age: 90 Year
  Sex: Male
  Weight: 76 kg

DRUGS (3)
  1. CEFTRIAXONE MYLAN [Suspect]
     Active Substance: CEFTRIAXONE
     Route: 042
     Dates: start: 20180603, end: 20180607
  2. AMOXICILLINE ACIDE CLAVULANIQUE SANDOZ [Suspect]
     Active Substance: AMOXICILLIN\CLAVULANATE POTASSIUM
     Route: 048
     Dates: start: 20180608, end: 20180609
  3. METRONIDAZOLE INJECTION USP (5 MG/ML) IN PAB? PLASTIC CONTAINER (NDA 0 [Suspect]
     Active Substance: METRONIDAZOLE
     Indication: LUNG DISORDER
     Route: 042
     Dates: start: 20180603, end: 20180609

REACTIONS (1)
  - Purpura [Recovered/Resolved]

NARRATIVE: CASE EVENT DATE: 20180610
